FAERS Safety Report 6386589-4 (Version None)
Quarter: 2009Q4

REPORT INFORMATION
  Report Type: 
  Country: None (occurrence: None)
  Receive Date: 20091002
  Receipt Date: 20090501
  Transmission Date: 20100525
  Serious: No
  Sender: FDA-Public Use
  Company Number: US-ASTRAZENECA-2009UW10931

PATIENT
  Age: 84 Year
  Sex: Male
  Weight: 79.4 kg

DRUGS (5)
  1. ARIMIDEX [Suspect]
     Indication: BREAST CANCER
     Route: 048
     Dates: start: 20070101
  2. ATENOLOL [Concomitant]
     Indication: HYPERTENSION
  3. LISINOPRIL [Concomitant]
     Indication: HYPERTENSION
  4. REQUIP [Concomitant]
     Indication: RESTLESS LEGS SYNDROME
  5. EXELON [Concomitant]
     Indication: AMNESIA

REACTIONS (7)
  - AMNESIA [None]
  - BACK DISORDER [None]
  - BACK PAIN [None]
  - CONDITION AGGRAVATED [None]
  - MUSCULAR WEAKNESS [None]
  - OEDEMA PERIPHERAL [None]
  - TRIGGER FINGER [None]
